FAERS Safety Report 15886548 (Version 3)
Quarter: 2019Q3

REPORT INFORMATION
  Report Type: Report from Study
  Country: US (occurrence: US)
  Receive Date: 20190129
  Receipt Date: 20190725
  Transmission Date: 20191004
  Serious: Yes (Other)
  Sender: FDA-Public Use
  Company Number: US-ACTELION-A-US2019-185380

PATIENT
  Age: 62 Year
  Sex: Male

DRUGS (16)
  1. OPSUMIT [Suspect]
     Active Substance: MACITENTAN
     Indication: PULMONARY ARTERIAL HYPERTENSION
     Dosage: 10 MG, QD
     Route: 048
     Dates: start: 20180117
  2. BUPROPION. [Concomitant]
     Active Substance: BUPROPION
  3. TRIAMTERENE AND HYDROCHLOROTHIAZID [Concomitant]
     Active Substance: HYDROCHLOROTHIAZIDE\TRIAMTERENE
  4. HCTZ [Concomitant]
     Active Substance: HYDROCHLOROTHIAZIDE
  5. FERROUS SULFATE. [Concomitant]
     Active Substance: FERROUS SULFATE
  6. TADALAFIL. [Suspect]
     Active Substance: TADALAFIL
     Indication: PULMONARY ARTERIAL HYPERTENSION
     Dosage: 40 MG, BID
     Route: 065
     Dates: start: 20181115
  7. PREDNISONE. [Concomitant]
     Active Substance: PREDNISONE
  8. FLUOROURACIL. [Concomitant]
     Active Substance: FLUOROURACIL
  9. IBUPROFEN. [Concomitant]
     Active Substance: IBUPROFEN
  10. METHOTREXATE. [Concomitant]
     Active Substance: METHOTREXATE
  11. OMEPRAZOLE. [Concomitant]
     Active Substance: OMEPRAZOLE
  12. CEVIMELINE. [Concomitant]
     Active Substance: CEVIMELINE
  13. SMZ (CO) [Concomitant]
  14. IRON [Concomitant]
     Active Substance: IRON
  15. GABAPENTIN. [Concomitant]
     Active Substance: GABAPENTIN
  16. CEPHALEXIN. [Concomitant]
     Active Substance: CEPHALEXIN

REACTIONS (3)
  - Emergency care [Not Recovered/Not Resolved]
  - Deafness [Unknown]
  - Localised infection [Unknown]

NARRATIVE: CASE EVENT DATE: 201905
